FAERS Safety Report 13398819 (Version 1)
Quarter: 2017Q2

REPORT INFORMATION
  Report Type: Spontaneous
  Country: JP (occurrence: JP)
  Receive Date: 20170403
  Receipt Date: 20170403
  Transmission Date: 20170830
  Serious: Yes (Hospitalization, Other)
  Sender: FDA-Public Use
  Company Number: JP-ROCHE-1735598

PATIENT
  Age: 6 Year
  Sex: Male

DRUGS (1)
  1. RITUXAN [Suspect]
     Active Substance: RITUXIMAB
     Indication: BURKITT^S LYMPHOMA
     Route: 041

REACTIONS (6)
  - Sinusitis [Unknown]
  - Disseminated intravascular coagulation [Unknown]
  - Bone marrow failure [Unknown]
  - Abdominal abscess [Unknown]
  - Peritonitis [Recovered/Resolved]
  - Gastrointestinal perforation [Not Recovered/Not Resolved]
